FAERS Safety Report 9555139 (Version 1)
Quarter: 2013Q3

REPORT INFORMATION
  Report Type: Spontaneous
  Country: US (occurrence: None)
  Receive Date: 20130912
  Receipt Date: 20130912
  Transmission Date: 20140515
  Serious: Yes (Hospitalization)
  Sender: FDA-Public Use
  Company Number: 2013AP001129

PATIENT
  Age: 38 Year
  Sex: Female

DRUGS (6)
  1. AZITHROMYCIN TABLETS [Suspect]
     Indication: SINUSITIS
  2. AZITHROMYCIN TABLETS [Suspect]
     Indication: LOWER RESPIRATORY TRACT INFECTION
  3. FOLIC ACID [Concomitant]
  4. FUROSEMIDE [Concomitant]
  5. SPIRONOLACTONE [Concomitant]
  6. MULTIVITAMINS [Concomitant]

REACTIONS (1)
  - Hepatotoxicity [None]
